FAERS Safety Report 6753199-6 (Version None)
Quarter: 2010Q2

REPORT INFORMATION
  Report Type: 
  Country: None (occurrence: None)
  Receive Date: 20100603
  Receipt Date: 20100525
  Transmission Date: 20101027
  Serious: Yes (Hospitalization, Other)
  Sender: FDA-Public Use
  Company Number: CY-PFIZER INC-2009238577

PATIENT
  Age: 50 Year
  Sex: Male

DRUGS (1)
  1. GEODON [Suspect]
     Dosage: 120 MG, TOTAL DAILY DOSE
     Dates: start: 20050101

REACTIONS (4)
  - DIABETES MELLITUS [None]
  - MENTAL DISORDER [None]
  - PRIAPISM [None]
  - VASCULAR INJURY [None]
